FAERS Safety Report 23665272 (Version 5)
Quarter: 2025Q3

REPORT INFORMATION
  Report Type: Report from Study
  Country: JP (occurrence: JP)
  Receive Date: 20240322
  Receipt Date: 20250809
  Transmission Date: 20251020
  Serious: Yes (Death, Life-Threatening, Other)
  Sender: ALEXION PHARMACEUTICALS
  Company Number: 2023A139706

PATIENT
  Age: 81 Year
  Sex: Male
  Weight: 50 kg

DRUGS (5)
  1. DURVALUMAB [Suspect]
     Active Substance: DURVALUMAB
     Indication: Hepatocellular carcinoma
     Dates: start: 20230526, end: 20230526
  2. TREMELIMUMAB [Suspect]
     Active Substance: TREMELIMUMAB
     Indication: Hepatocellular carcinoma
     Dates: start: 20230526, end: 20230526
  3. FLUCONAZOLE [Suspect]
     Active Substance: FLUCONAZOLE
     Indication: Prophylaxis
     Route: 065
     Dates: start: 20230606, end: 20230727
  4. SAMSCA [Suspect]
     Active Substance: TOLVAPTAN
     Indication: Ascites
     Route: 065
     Dates: start: 20230714, end: 20230718
  5. SAMSCA [Suspect]
     Active Substance: TOLVAPTAN
     Route: 065
     Dates: start: 20230719, end: 20230727

REACTIONS (3)
  - Immune thrombocytopenia [Recovered/Resolved]
  - Drug-induced liver injury [Fatal]
  - Immune-mediated dermatitis [Recovered/Resolved]

NARRATIVE: CASE EVENT DATE: 20230606
